FAERS Safety Report 4991376-5 (Version None)
Quarter: 2006Q2

REPORT INFORMATION
  Report Type: 
  Country: None (occurrence: None)
  Receive Date: 20060501
  Receipt Date: 20060419
  Transmission Date: 20061013
  Serious: Yes (Death, Hospitalization)
  Sender: FDA-Public Use
  Company Number: 200610847BWH

PATIENT
  Age: 64 Year
  Sex: Female
  Weight: 63.5036 kg

DRUGS (9)
  1. NEXAVAR [Suspect]
     Indication: RENAL CELL CARCINOMA STAGE UNSPECIFIED
     Dosage: SEE IMAGE
     Route: 048
     Dates: start: 20060201
  2. FLEXERIL [Concomitant]
  3. PERCOCET [Concomitant]
  4. NEURONTIN [Concomitant]
  5. VITAMINS NOS [Concomitant]
  6. COLACE [Concomitant]
  7. LYSINE [Concomitant]
  8. REJUVEX [Concomitant]
  9. COQ10 [Concomitant]

REACTIONS (5)
  - INTESTINAL OBSTRUCTION [None]
  - MALIGNANT NEOPLASM PROGRESSION [None]
  - METASTASES TO STOMACH [None]
  - NAUSEA [None]
  - VOMITING [None]
